FAERS Safety Report 13243235 (Version 3)
Quarter: 2017Q1

REPORT INFORMATION
  Report Type: Spontaneous
  Country: CN (occurrence: CN)
  Receive Date: 20170216
  Receipt Date: 20170307
  Transmission Date: 20170428
  Serious: Yes (Other)
  Sender: FDA-Public Use
  Company Number: CN-ABBVIE-17P-035-1876774-00

PATIENT
  Age: 30 Year
  Sex: Male

DRUGS (4)
  1. DEPAKINE CHRONO [Suspect]
     Active Substance: VALPROATE SODIUM
     Route: 048
     Dates: start: 20161207, end: 201701
  2. PHENOBARBITAL. [Concomitant]
     Active Substance: PHENOBARBITAL
     Indication: PRODUCT USED FOR UNKNOWN INDICATION
     Dates: end: 201611
  3. DEPAKINE CHRONO [Suspect]
     Active Substance: VALPROATE SODIUM
     Indication: EPILEPSY
     Route: 048
     Dates: start: 20161206, end: 20161206
  4. SODIUM VALPROATE [Concomitant]
     Active Substance: VALPROATE SODIUM
     Indication: PRODUCT USED FOR UNKNOWN INDICATION
     Dates: end: 201611

REACTIONS (13)
  - Dizziness [Recovered/Resolved]
  - Tourette^s disorder [Recovered/Resolved]
  - Self-medication [Unknown]
  - Nausea [Unknown]
  - Eye movement disorder [Recovered/Resolved]
  - Tongue biting [Recovered/Resolved]
  - Epilepsy [Recovered/Resolved]
  - Lethargy [Recovered/Resolved]
  - Suspected counterfeit product [Unknown]
  - Foaming at mouth [Recovered/Resolved]
  - Epilepsy [Recovered/Resolved]
  - Therapeutic response decreased [Unknown]
  - Trismus [Recovered/Resolved]

NARRATIVE: CASE EVENT DATE: 20161207
